FAERS Safety Report 6454269-2 (Version None)
Quarter: 2009Q4

REPORT INFORMATION
  Report Type: 
  Country: None (occurrence: None)
  Receive Date: 20091117
  Receipt Date: 20091104
  Transmission Date: 20100525
  Serious: Yes (Hospitalization)
  Sender: FDA-Public Use
  Company Number: D0900916

PATIENT
  Age: 49 Year
  Sex: Female
  Weight: 84.55 kg

DRUGS (9)
  1. JANTOVEN [Suspect]
     Indication: THROMBOSIS PROPHYLAXIS
     Dosage: 1 IN 1 D, ORAL
     Route: 048
  2. ENOXAPARIN SODIUM [Suspect]
     Indication: THROMBOSIS PROPHYLAXIS
     Dosage: 80 MG ONCE
     Dates: start: 20091011, end: 20091011
  3. SYNTHROID [Concomitant]
  4. MAXZIDE [Concomitant]
  5. ATENOLOL [Concomitant]
  6. LEXAPRO [Concomitant]
  7. CIMETIDINE [Concomitant]
  8. KLOR-CON [Concomitant]
  9. PREDNISONE TAB [Concomitant]

REACTIONS (3)
  - ACTIVATED PARTIAL THROMBOPLASTIN TIME PROLONGED [None]
  - SARCOIDOSIS [None]
  - SKIN HAEMORRHAGE [None]
